FAERS Safety Report 15528983 (Version 1)
Quarter: 2018Q4

REPORT INFORMATION
  Report Type: Report from Study
  Country: US (occurrence: US)
  Receive Date: 20181018
  Receipt Date: 20181018
  Transmission Date: 20190205
  Serious: No
  Sender: FDA-Public Use
  Company Number: US-AMGEN-USASL2018125913

PATIENT
  Age: 79 Year
  Sex: Male

DRUGS (1)
  1. REPATHA [Suspect]
     Active Substance: EVOLOCUMAB
     Indication: HYPERCHOLESTEROLAEMIA
     Dosage: 140 MG/DL, Q2WK
     Route: 065
     Dates: start: 2016

REACTIONS (8)
  - Headache [Unknown]
  - Pollakiuria [Unknown]
  - Arthralgia [Unknown]
  - Insomnia [Unknown]
  - Myalgia [Unknown]
  - Neck pain [Unknown]
  - Rash papular [Recovering/Resolving]
  - Fatigue [Unknown]

NARRATIVE: CASE EVENT DATE: 20180902
